FAERS Safety Report 9067647 (Version 1)
Quarter: 2013Q1

REPORT INFORMATION
  Report Type: Spontaneous
  Country: US (occurrence: US)
  Receive Date: 20130206
  Receipt Date: 20130206
  Transmission Date: 20140127
  Serious: No
  Sender: FDA-Public Use
  Company Number: US-TARO-2012P1059888

PATIENT
  Age: 76 Year
  Sex: Male
  Weight: 79.38 kg

DRUGS (4)
  1. KETOCONAZOLE [Suspect]
     Indication: SEBORRHOEIC DERMATITIS
     Route: 061
     Dates: start: 201207
  2. BENICAR [Concomitant]
  3. ASPIRIN [Concomitant]
  4. PREVACID SOLU-TAB 30MG [Concomitant]

REACTIONS (2)
  - Dandruff [Not Recovered/Not Resolved]
  - Drug ineffective [Not Recovered/Not Resolved]
